FAERS Safety Report 7968669-2 (Version None)
Quarter: 2011Q4

REPORT INFORMATION
  Report Type: 
  Country: None (occurrence: None)
  Receive Date: 20111209
  Receipt Date: 20110728
  Transmission Date: 20120403
  Serious: Yes (Other)
  Sender: FDA-Public Use
  Company Number: JP-GLAXOSMITHKLINE-B0736441A

PATIENT
  Sex: Male

DRUGS (7)
  1. U PAN [Concomitant]
     Indication: DEPRESSION
     Dosage: 2MG PER DAY
     Route: 048
  2. DIOVAN [Concomitant]
     Indication: HYPERTENSION
     Dosage: 80MG PER DAY
     Route: 048
  3. LITHIUM CARBONATE [Concomitant]
     Indication: BIPOLAR I DISORDER
     Dosage: 200MG PER DAY
     Route: 048
  4. LAMICTAL [Suspect]
     Indication: BIPOLAR DISORDER
     Route: 048
     Dates: start: 20110621, end: 20110728
  5. FLUVOXAMINE MALEATE [Concomitant]
     Indication: DEPRESSION
     Dosage: 50MG PER DAY
     Route: 048
  6. LANSOPRAZOLE [Concomitant]
     Indication: GASTRIC ULCER
     Dosage: 15MG PER DAY
     Route: 048
  7. VALPROATE SODIUM [Concomitant]
     Dosage: 400MG PER DAY
     Route: 048
     Dates: start: 20110621, end: 20110728

REACTIONS (20)
  - ENANTHEMA [None]
  - ERYTHEMA OF EYELID [None]
  - LIMB DISCOMFORT [None]
  - PALMAR ERYTHEMA [None]
  - DYSGEUSIA [None]
  - EYELIDS PRURITUS [None]
  - PLANTAR ERYTHEMA [None]
  - DISCOMFORT [None]
  - PARAESTHESIA ORAL [None]
  - ORAL PAIN [None]
  - PYREXIA [None]
  - ERYTHEMA [None]
  - MALAISE [None]
  - DRUG RASH WITH EOSINOPHILIA AND SYSTEMIC SYMPTOMS [None]
  - DRUG ERUPTION [None]
  - PRURITUS [None]
  - OROPHARYNGEAL PAIN [None]
  - RASH [None]
  - HYPOAESTHESIA ORAL [None]
  - ORAL DISCOMFORT [None]
